FAERS Safety Report 7587352-9 (Version None)
Quarter: 2011Q3

REPORT INFORMATION
  Report Type: 
  Country: None (occurrence: None)
  Receive Date: 20110701
  Receipt Date: 20110622
  Transmission Date: 20111222
  Serious: Yes (Hospitalization)
  Sender: FDA-Public Use
  Company Number: BR-ASTRAZENECA-2011SE38265

PATIENT
  Age: 72 Year
  Sex: Male
  Weight: 116 kg

DRUGS (2)
  1. ATACAND [Suspect]
     Indication: HYPERTENSION
     Route: 048
     Dates: start: 20070101, end: 20110101
  2. DUDASTERIDA [Concomitant]
     Indication: BENIGN PROSTATIC HYPERPLASIA
     Route: 048
     Dates: start: 20020101

REACTIONS (7)
  - RENAL CYST [None]
  - RENAL CANCER STAGE IV [None]
  - BLOOD PRESSURE DECREASED [None]
  - WEIGHT DECREASED [None]
  - GALLBLADDER PAIN [None]
  - RENAL SURGERY [None]
  - CYST REMOVAL [None]
